FAERS Safety Report 7301580-9 (Version None)
Quarter: 2011Q1

REPORT INFORMATION
  Report Type: 
  Country: None (occurrence: None)
  Receive Date: 20110218
  Receipt Date: 20110207
  Transmission Date: 20110831
  Serious: Yes (Other)
  Sender: FDA-Public Use
  Company Number: CA-ELI_LILLY_AND_COMPANY-CA201102002479

PATIENT
  Sex: Female

DRUGS (19)
  1. SYNTHROID [Concomitant]
     Dosage: 0.175 MG, UNKNOWN
     Route: 064
     Dates: start: 20060310
  2. SYNTHROID [Concomitant]
     Dosage: 0.15 MG, UNKNOWN
     Route: 064
     Dates: start: 20051026
  3. TIAZAC                             /00489702/ [Concomitant]
     Dosage: 240 MG, UNKNOWN
     Route: 064
     Dates: start: 20051026
  4. APO-PAROXETINE [Concomitant]
     Dosage: 10 MG, UNKNOWN
     Route: 064
     Dates: start: 20051207
  5. NOVOLIN 70/30 [Concomitant]
     Dosage: 100 U/ML, UNKNOWN
     Route: 064
     Dates: start: 20060225
  6. NASONEX [Concomitant]
     Dosage: 50 UG, UNKNOWN
     Route: 064
  7. FERROUS SULFATE TAB [Concomitant]
     Dosage: 300 MG, UNKNOWN
     Route: 064
     Dates: start: 20060620
  8. ZYPREXA [Suspect]
     Dosage: 10 MG, DAILY (1/D)
     Route: 064
     Dates: start: 19980609
  9. GEN-PAROXETINE [Concomitant]
     Dosage: 20 MG, UNKNOWN
     Route: 064
     Dates: start: 20060501
  10. GEN-PAROXETINE [Concomitant]
     Dosage: 30 MG, UNKNOWN
     Route: 064
     Dates: start: 20060503
  11. NOVORAPID [Concomitant]
     Dosage: 100 U/ML, UNKNOWN
     Route: 064
     Dates: start: 20060225
  12. FLONASE [Concomitant]
     Dosage: 50 MG, UNKNOWN
     Route: 064
  13. APO-LABETALOL [Concomitant]
     Dosage: 100 MG, UNKNOWN
     Route: 064
  14. APO-PAROXETINE [Concomitant]
     Dosage: 30 MG, UNKNOWN
     Route: 064
     Dates: start: 20051010
  15. SYNTHROID [Concomitant]
     Dosage: 0.2 MG, UNKNOWN
     Route: 064
     Dates: start: 20060225
  16. GEN-PAROXETINE [Concomitant]
     Dosage: 30 MG, UNKNOWN
     Route: 064
     Dates: start: 20060206
  17. ATIVAN [Concomitant]
     Dosage: 1 MG, UNKNOWN
     Route: 064
     Dates: start: 20060620
  18. APO-PAROXETINE [Concomitant]
     Dosage: 30 MG, UNKNOWN
     Route: 064
     Dates: start: 20060103
  19. ASAPHEN [Concomitant]
     Dosage: 80 MG, UNKNOWN
     Route: 064
     Dates: start: 20060210

REACTIONS (3)
  - DRUG EXPOSURE VIA BREAST MILK [None]
  - DRUG EXPOSURE DURING PREGNANCY [None]
  - PREMATURE BABY [None]
